FAERS Safety Report 7729892-5 (Version None)
Quarter: 2011Q3

REPORT INFORMATION
  Report Type: 
  Country: None (occurrence: None)
  Receive Date: 20110906
  Receipt Date: 20110829
  Transmission Date: 20111222
  Serious: Yes (Hospitalization)
  Sender: FDA-Public Use
  Company Number: DE-ROCHE-799323

PATIENT

DRUGS (6)
  1. ALLOPURINOL [Suspect]
     Route: 065
  2. CEFTRIAXONE SODIUM [Suspect]
     Route: 065
  3. METFORMIN HCL [Suspect]
     Route: 065
  4. COTRIM [Suspect]
     Route: 065
  5. RIBAVIRIN [Suspect]
     Route: 065
  6. GRANISETRON HYDROCHLORIDE [Suspect]
     Route: 065

REACTIONS (1)
  - HAEMOLYTIC ANAEMIA [None]
